FAERS Safety Report 14739390 (Version 3)
Quarter: 2018Q3

REPORT INFORMATION
  Report Type: Report from Study
  Country: GB (occurrence: GB)
  Receive Date: 20180410
  Receipt Date: 20180821
  Transmission Date: 20181010
  Serious: Yes (Hospitalization, Other)
  Sender: FDA-Public Use
  Company Number: GB-ROCHE-2035624

PATIENT
  Sex: Female

DRUGS (4)
  1. ROACTEMRA [Suspect]
     Active Substance: TOCILIZUMAB
     Indication: RHEUMATOID ARTHRITIS
     Route: 058
     Dates: start: 20171106
  2. PREDNISONE. [Suspect]
     Active Substance: PREDNISONE
     Indication: PRODUCT USED FOR UNKNOWN INDICATION
     Route: 065
  3. ROACTEMRA [Suspect]
     Active Substance: TOCILIZUMAB
     Route: 058
     Dates: start: 20171031
  4. PARACETAMOL [Concomitant]
     Active Substance: ACETAMINOPHEN

REACTIONS (16)
  - Fall [Unknown]
  - Neoplasm malignant [Unknown]
  - Arthropathy [Unknown]
  - Malaise [Unknown]
  - Rash erythematous [Unknown]
  - Erythema [Unknown]
  - Limb mass [Unknown]
  - Gait disturbance [Unknown]
  - Swelling face [Unknown]
  - Rash [Unknown]
  - Arthralgia [Unknown]
  - Pneumonia [Unknown]
  - Ill-defined disorder [Recovering/Resolving]
  - Staphylococcal infection [Unknown]
  - Pain [Unknown]
  - Sensory disturbance [Unknown]
